FAERS Safety Report 12644608 (Version 10)
Quarter: 2017Q2

REPORT INFORMATION
  Report Type: Spontaneous
  Country: US (occurrence: US)
  Receive Date: 20160811
  Receipt Date: 20170509
  Transmission Date: 20170830
  Serious: Yes (Death, Hospitalization, Other)
  Sender: FDA-Public Use
  Company Number: US-AMGEN-USASP2016103796

PATIENT
  Age: 74 Year
  Sex: Male
  Weight: 85.26 kg

DRUGS (2)
  1. IMLYGIC [Suspect]
     Active Substance: TALIMOGENE LAHERPAREPVEC
     Indication: MELANOMA RECURRENT
  2. IMLYGIC [Suspect]
     Active Substance: TALIMOGENE LAHERPAREPVEC
     Indication: METASTATIC MALIGNANT MELANOMA
     Dosage: 1 ML, ONE TIME DOSE
     Route: 026
     Dates: start: 20160105, end: 20160105

REACTIONS (27)
  - Herpes simplex hepatitis [Not Recovered/Not Resolved]
  - Lymphangitis [Not Recovered/Not Resolved]
  - Systemic inflammatory response syndrome [Fatal]
  - Staphylococcal sepsis [Fatal]
  - Septic shock [Fatal]
  - Herpes dermatitis [Not Recovered/Not Resolved]
  - Diarrhoea [Not Recovered/Not Resolved]
  - Product use issue [Unknown]
  - Pulmonary oedema [Not Recovered/Not Resolved]
  - Gastritis erosive [Not Recovered/Not Resolved]
  - Procedural haemorrhage [Unknown]
  - Coronary artery stenosis [Not Recovered/Not Resolved]
  - Enterococcal sepsis [Fatal]
  - Gastric haemorrhage [Not Recovered/Not Resolved]
  - Gallbladder cholesterolosis [Not Recovered/Not Resolved]
  - Renal tubular necrosis [Not Recovered/Not Resolved]
  - Fibrosis [Not Recovered/Not Resolved]
  - Respiratory failure [Not Recovered/Not Resolved]
  - Immunosuppression [Not Recovered/Not Resolved]
  - Gangrene [Not Recovered/Not Resolved]
  - Herpes simplex sepsis [Fatal]
  - Pseudomonal sepsis [Fatal]
  - Polymerase chain reaction positive [Unknown]
  - Hepatic necrosis [Not Recovered/Not Resolved]
  - Lymphadenitis viral [Not Recovered/Not Resolved]
  - Gastrointestinal mucosal necrosis [Not Recovered/Not Resolved]
  - Splenic necrosis [Not Recovered/Not Resolved]

NARRATIVE: CASE EVENT DATE: 201601
